FAERS Safety Report 5877259-7 (Version None)
Quarter: 2008Q3

REPORT INFORMATION
  Report Type: 
  Country: None (occurrence: None)
  Receive Date: 20080910
  Receipt Date: 20080902
  Transmission Date: 20090109
  Serious: Yes (Other)
  Sender: FDA-Public Use
  Company Number: US-PFIZER INC-2008073467

PATIENT
  Sex: Female
  Weight: 106.81 kg

DRUGS (11)
  1. NORVASC [Suspect]
     Indication: BLOOD PRESSURE
     Dates: start: 20080101
  2. LEVOTHYROXINE SODIUM [Concomitant]
  3. LISINOPRIL [Concomitant]
  4. EFFEXOR [Concomitant]
  5. LORAZEPAM [Concomitant]
  6. GABAPENTIN [Concomitant]
  7. WELLBUTRIN [Concomitant]
  8. LAMICTAL [Concomitant]
  9. VITAMIN D [Concomitant]
  10. TYLENOL (CAPLET) [Concomitant]
  11. CELEBREX [Concomitant]

REACTIONS (2)
  - CONTUSION [None]
  - VAGINAL HAEMORRHAGE [None]
